FAERS Safety Report 5712332-5 (Version None)
Quarter: 2008Q2

REPORT INFORMATION
  Report Type: 
  Country: None (occurrence: None)
  Receive Date: 20080417
  Receipt Date: 20080409
  Transmission Date: 20081010
  Serious: Yes (Death)
  Sender: FDA-Public Use
  Company Number: 163-21880-08040718

PATIENT
  Age: 77 Year
  Sex: Female

DRUGS (9)
  1. REVLIMID [Suspect]
     Indication: MULTIPLE MYELOMA
     Dosage: 15 MG, 1 IN 1 D, ORAL
     Route: 048
     Dates: start: 20071031, end: 20080127
  2. ATIVAN [Concomitant]
  3. MORPHINE [Concomitant]
  4. DECADRON [Concomitant]
  5. SENOKOT [Concomitant]
  6. ATENOLOL [Concomitant]
  7. CELEXA [Concomitant]
  8. FLONASE [Concomitant]
  9. ASPIRIN [Concomitant]

REACTIONS (1)
  - DEATH [None]
